FAERS Safety Report 8197936-5 (Version None)
Quarter: 2012Q1

REPORT INFORMATION
  Report Type: 
  Country: None (occurrence: None)
  Receive Date: 20120309
  Receipt Date: 20120209
  Transmission Date: 20120608
  Serious: No
  Sender: FDA-Public Use
  Company Number: US-AMGEN-USASP2011043440

PATIENT
  Age: 75 Year
  Sex: Male
  Weight: 82.086 kg

DRUGS (11)
  1. SIMVASTATIN [Concomitant]
  2. CYSTEINE HYDROCHLORIDE [Concomitant]
  3. AGGRENOX [Concomitant]
  4. CLONIDINE [Concomitant]
  5. DIVALPROEX SODIUM [Concomitant]
  6. PREVACID [Concomitant]
  7. XGEVA [Suspect]
     Indication: METASTASES TO BONE
     Dosage: 120 MG, Q4WK
     Route: 058
     Dates: start: 20110622
  8. NASACORT [Concomitant]
  9. CALCIUM [Concomitant]
  10. VITAMIN D [Concomitant]
  11. AMLODIPINE [Concomitant]

REACTIONS (1)
  - MUSCLE TWITCHING [None]
